FAERS Safety Report 12289309 (Version 1)
Quarter: 2016Q2

REPORT INFORMATION
  Report Type: Spontaneous
  Country: US (occurrence: US)
  Receive Date: 20160421
  Receipt Date: 20160421
  Transmission Date: 20160815
  Serious: No
  Sender: FDA-Public Use
  Company Number: US-ALVOGEN-2015-ALVOGEN-016915

PATIENT
  Sex: Female
  Weight: 77.11 kg

DRUGS (2)
  1. ROSUVASTATIN CALCIUM. [Concomitant]
     Active Substance: ROSUVASTATIN CALCIUM
     Indication: BLOOD CHOLESTEROL INCREASED
     Route: 048
  2. ATENOLOL. [Suspect]
     Active Substance: ATENOLOL
     Indication: HYPERTENSION
     Route: 048

REACTIONS (7)
  - Dry mouth [Unknown]
  - Cough [Unknown]
  - Breath sounds [Unknown]
  - Dizziness [Unknown]
  - Product substitution issue [Unknown]
  - Insomnia [Unknown]
  - Pain in extremity [Unknown]
